FAERS Safety Report 4451239-0 (Version None)
Quarter: 2004Q3

REPORT INFORMATION
  Report Type: 
  Country: None (occurrence: None)
  Receive Date: 20040913
  Receipt Date: 20040706
  Transmission Date: 20050211
  Serious: No
  Sender: FDA-Public Use
  Company Number: 2004-BP-05634BP

PATIENT
  Age: 72 Year
  Sex: Female

DRUGS (10)
  1. SPIRIVA [Suspect]
     Dosage: (18 MCG)
  2. ACCOLATE [Concomitant]
  3. FOLIC ACID [Concomitant]
  4. VITAMINS C, B,  E [Concomitant]
  5. ALBUTEROL [Concomitant]
  6. ATROVENT [Concomitant]
  7. DIAZIDE (GLICLAZIDE) [Concomitant]
  8. LASIX [Concomitant]
  9. COMBIVENT (C0MBIVENT) [Concomitant]
  10. ZITHROMAX [Concomitant]

REACTIONS (4)
  - APHONIA [None]
  - COUGH [None]
  - FATIGUE [None]
  - FEELING JITTERY [None]
